FAERS Safety Report 4401622-4 (Version None)
Quarter: 2004Q3

REPORT INFORMATION
  Report Type: 
  Country: None (occurrence: None)
  Receive Date: 20040714
  Receipt Date: 20040706
  Transmission Date: 20050211
  Serious: Yes (Disabling)
  Sender: FDA-Public Use
  Company Number: 002#4#2004-00020 (0)

PATIENT
  Age: 53 Year
  Sex: Male

DRUGS (1)
  1. PPA/CPM-75/8 MG (OTC) (PHENYLPROPANOLAMINE HCL, CHLORPHENIRAMINE MALEA [Suspect]
     Dosage: ORAL
     Route: 048
     Dates: start: 19980707

REACTIONS (8)
  - CEREBROVASCULAR ACCIDENT [None]
  - COORDINATION ABNORMAL [None]
  - DYSPHAGIA [None]
  - HEADACHE [None]
  - INJURY [None]
  - NAUSEA [None]
  - TEMPERATURE INTOLERANCE [None]
  - VOMITING [None]
